FAERS Safety Report 11977557 (Version 1)
Quarter: 2016Q1

REPORT INFORMATION
  Report Type: Spontaneous
  Country: US (occurrence: US)
  Receive Date: 20160129
  Receipt Date: 20160129
  Transmission Date: 20160526
  Serious: Yes (Death)
  Sender: FDA-Public Use
  Company Number: US-ACTELION-A-US2016-130605

PATIENT
  Age: 8 Month
  Sex: Female

DRUGS (1)
  1. TRACLEER [Suspect]
     Active Substance: BOSENTAN
     Indication: PRODUCT USED FOR UNKNOWN INDICATION
     Dosage: 31.25 MG, UNK
     Route: 048
     Dates: start: 20150929

REACTIONS (1)
  - Death [Fatal]

NARRATIVE: CASE EVENT DATE: 20151216
